FAERS Safety Report 22046873 (Version 2)
Quarter: 2023Q1

REPORT INFORMATION
  Report Type: Spontaneous
  Country: JP (occurrence: JP)
  Receive Date: 20230228
  Receipt Date: 20230305
  Transmission Date: 20230417
  Serious: Yes (Other)
  Sender: FDA-Public Use
  Company Number: None

PATIENT
  Age: 48 Year
  Sex: Female

DRUGS (7)
  1. HYDROCORTISONE [Suspect]
     Active Substance: HYDROCORTISONE
     Indication: Lymphocytic hypophysitis
     Dosage: 10 MILLIGRAM, PER DAY
     Route: 065
  2. HYDROCORTISONE [Suspect]
     Active Substance: HYDROCORTISONE
     Dosage: 5 MILLIGRAM, PER DAY
     Route: 065
  3. VASOPRESSIN [Concomitant]
     Active Substance: VASOPRESSIN
     Indication: Diabetes insipidus
     Dosage: UNK, SPRAY
     Route: 045
  4. VASOPRESSIN [Concomitant]
     Active Substance: VASOPRESSIN
     Indication: Polyuria
     Dosage: UNK
     Route: 048
  5. VASOPRESSIN [Concomitant]
     Active Substance: VASOPRESSIN
     Indication: Polydipsia
  6. LEVOTHYROXINE [Concomitant]
     Active Substance: LEVOTHYROXINE
     Indication: Supplementation therapy
     Dosage: UNK
     Route: 065
  7. SOMATROPIN [Concomitant]
     Active Substance: SOMATROPIN
     Indication: Growth hormone deficiency
     Dosage: UNK
     Route: 065

REACTIONS (2)
  - Obesity [Unknown]
  - Steroid diabetes [Unknown]
